FAERS Safety Report 8601625-X (Version None)
Quarter: 2012Q3

REPORT INFORMATION
  Report Type: 
  Country: None (occurrence: None)
  Receive Date: 20120817
  Receipt Date: 20111228
  Transmission Date: 20120928
  Serious: No
  Sender: FDA-Public Use
  Company Number: US-BRISTOL-MYERS SQUIBB COMPANY-16320137

PATIENT
  Age: 84 Year
  Sex: Male

DRUGS (2)
  1. TASIGNA [Concomitant]
  2. SPRYCEL [Suspect]

REACTIONS (1)
  - BLOOD URINE PRESENT [None]
